FAERS Safety Report 5002111-9 (Version None)
Quarter: 2006Q2

REPORT INFORMATION
  Report Type: 
  Country: None (occurrence: None)
  Receive Date: 20060510
  Receipt Date: 20060503
  Transmission Date: 20061013
  Serious: Yes (Other)
  Sender: FDA-Public Use
  Company Number: 2006059148

PATIENT
  Sex: Male
  Weight: 108.4097 kg

DRUGS (15)
  1. LIPITOR [Suspect]
     Indication: BLOOD CHOLESTEROL INCREASED
     Dosage: 40 MG (40 MG, 1 IN 1 D),
     Dates: end: 20060101
  2. GLIPIZIDE [Suspect]
     Indication: DIABETES MELLITUS
     Dosage: 5 MG (5 MG, 1 IN 1 D), ORAL
     Route: 048
  3. ACTOS [Suspect]
     Indication: DIABETES MELLITUS
     Dates: end: 20060101
  4. TRAVATAN [Concomitant]
  5. ALPHAGAN [Concomitant]
  6. ADVAIR DISKUS 100/50 [Concomitant]
  7. MONTELUKAST SODIUM (MONTELUKAST SODIUM) [Concomitant]
  8. GARLIC (GARLIC) [Concomitant]
  9. VITAMIN E [Concomitant]
  10. COENZYME Q10 [Concomitant]
  11. SALBUTAMOL (SALBUTAMOL) [Concomitant]
  12. METFORMIN [Concomitant]
  13. TRICOR [Concomitant]
  14. MULTIVITAMIN [Concomitant]
  15. INSULIN [Concomitant]

REACTIONS (7)
  - ASTHENIA [None]
  - BLOOD TRIGLYCERIDES INCREASED [None]
  - DEPRESSION [None]
  - DIABETES MELLITUS [None]
  - FALL [None]
  - MYOPATHY [None]
  - WEIGHT INCREASED [None]
